FAERS Safety Report 15573638 (Version 1)
Quarter: 2018Q4

REPORT INFORMATION
  Report Type: Spontaneous
  Country: US (occurrence: US)
  Receive Date: 20181101
  Receipt Date: 20181101
  Transmission Date: 20190205
  Serious: Yes (Hospitalization)
  Sender: FDA-Public Use
  Company Number: US-PACIRA PHARMACEUTICALS, INC.-2018EXPUS00670

PATIENT

DRUGS (5)
  1. EXPAREL [Suspect]
     Active Substance: BUPIVACAINE
     Indication: NERVE BLOCK
     Dosage: INTERSCALENE BLOCK WITH 15ML OF 0.25% AND 30 ML OF 0.5% BUPIVACAINE WITH EPINEPHRINE
     Route: 065
  2. ISOFLURANE. [Concomitant]
     Active Substance: ISOFLURANE
     Indication: GENERAL ANAESTHESIA
     Dosage: UNK
     Route: 065
  3. EXPAREL [Suspect]
     Active Substance: BUPIVACAINE
     Indication: NERVE BLOCK
     Dosage: INTERSCALENE BLOCK WITH 15ML OF 0.25% AND 30 ML OF 0.5% BUPIVACAINE WITH EPINEPHRINE
  4. NITROUS OXIDE. [Concomitant]
     Active Substance: NITROUS OXIDE
     Indication: GENERAL ANAESTHESIA
     Dosage: UNK
     Route: 065
  5. EPINEPHRINE. [Suspect]
     Active Substance: EPINEPHRINE
     Indication: NERVE BLOCK
     Dosage: INTERSCALENE BLOCK WITH 15ML OF 0.25% AND 30 ML OF 0.5% BUPIVACAINE WITH EPINEPHRINE
     Route: 065

REACTIONS (2)
  - Horner^s syndrome [Unknown]
  - Status epilepticus [Recovered/Resolved]
